FAERS Safety Report 24595323 (Version 1)
Quarter: 2024Q4

REPORT INFORMATION
  Report Type: Spontaneous
  Country: CN (occurrence: CN)
  Receive Date: 20241109
  Receipt Date: 20241109
  Transmission Date: 20250114
  Serious: Yes (Hospitalization)
  Sender: ROCHE
  Company Number: CN-ROCHE-10000127725

PATIENT
  Age: 47 Year
  Sex: Female
  Weight: 58 kg

DRUGS (2)
  1. BEVACIZUMAB [Suspect]
     Active Substance: BEVACIZUMAB
     Indication: Ovarian cancer
     Route: 042
     Dates: start: 20240909, end: 20240909
  2. SINTILIMAB [Suspect]
     Active Substance: SINTILIMAB
     Indication: Ovarian cancer
     Route: 042
     Dates: start: 20240912, end: 20240912

REACTIONS (4)
  - Myelosuppression [Recovering/Resolving]
  - Hypoaesthesia [Unknown]
  - Pyrexia [Unknown]
  - Vomiting [Unknown]

NARRATIVE: CASE EVENT DATE: 20241003
